FAERS Safety Report 5644765-X (Version None)
Quarter: 2008Q1

REPORT INFORMATION
  Report Type: 
  Country: None (occurrence: None)
  Receive Date: 20080229
  Receipt Date: 20070724
  Transmission Date: 20080703
  Serious: No
  Sender: FDA-Public Use
  Company Number: A0666046A

PATIENT
  Sex: Female

DRUGS (2)
  1. VALTREX [Suspect]
     Indication: HERPES VIRUS INFECTION
     Dosage: 1G PER DAY
     Route: 048
  2. UNKNOWN [Concomitant]

REACTIONS (1)
  - DRUG EXPOSURE DURING PREGNANCY [None]
